FAERS Safety Report 23452276 (Version 3)
Quarter: 2024Q4

REPORT INFORMATION
  Report Type: Spontaneous
  Country: US (occurrence: US)
  Receive Date: 20240129
  Receipt Date: 20241129
  Transmission Date: 20250114
  Serious: No
  Sender: BIOGEN
  Company Number: US-BIOGEN-2024BI01247119

PATIENT
  Sex: Female

DRUGS (7)
  1. PLEGRIDY [Suspect]
     Active Substance: PEGINTERFERON BETA-1A
     Indication: Multiple sclerosis
     Dosage: INJECT 125 MCG (1 INYECTOR) SUBCUTANEOUSLY EVERY 2 WEEKS
     Route: 050
     Dates: start: 20231026
  2. LISINOPRIL [Concomitant]
     Active Substance: LISINOPRIL
     Route: 050
  3. CLOPIDOGREL [Concomitant]
     Active Substance: CLOPIDOGREL BISULFATE
     Route: 050
  4. ASPIRIN [Concomitant]
     Active Substance: ASPIRIN
     Route: 050
  5. VITAMIN D3 [Concomitant]
     Active Substance: CHOLECALCIFEROL
     Dosage: 2,000UNIT
     Route: 050
  6. VITAMINS [Concomitant]
     Active Substance: VITAMINS
     Dosage: QC WOMENS DAILY MULTIVITAMIN
     Route: 050
  7. PROLIA [Concomitant]
     Active Substance: DENOSUMAB
     Route: 050

REACTIONS (2)
  - Osteoporosis [Unknown]
  - Injection site erythema [Not Recovered/Not Resolved]
